FAERS Safety Report 8129646-4 (Version None)
Quarter: 2012Q1

REPORT INFORMATION
  Report Type: 
  Country: None (occurrence: None)
  Receive Date: 20120103
  Receipt Date: 20111106
  Transmission Date: 20120608
  Serious: No
  Sender: FDA-Public Use
  Company Number: AE-2011-003135

PATIENT
  Age: 60 Year
  Sex: Male
  Weight: 107.9561 kg

DRUGS (5)
  1. RIBAVIRIN [Concomitant]
  2. ALEVE [Concomitant]
  3. INCIVEK [Suspect]
     Dosage: 2250 MG (750 MG, 1 IN 8 HR), ORAL
     Route: 048
     Dates: start: 20110927
  4. PEGINTERFERON (PEGINTERFERON ALFA-2A) [Concomitant]
  5. BENECOL [Concomitant]

REACTIONS (1)
  - DRUG ADMINISTRATION ERROR [None]
